FAERS Safety Report 19504079 (Version 1)
Quarter: 2021Q3

REPORT INFORMATION
  Report Type: Not Available
  Country: CO (occurrence: CO)
  Receive Date: 20210707
  Receipt Date: 20210707
  Transmission Date: 20211014
  Serious: Yes (Hospitalization)
  Sender: FDA-Public Use
  Company Number: CO-TEIKOKU PHARMA USA-TPU2021-00717

PATIENT
  Age: 75 Year
  Sex: Male

DRUGS (2)
  1. VERSATIS [Suspect]
     Active Substance: LIDOCAINE
     Indication: PAIN
     Route: 061
     Dates: start: 20210413, end: 20210619
  2. VERSATIS [Suspect]
     Active Substance: LIDOCAINE
     Indication: HERPES ZOSTER

REACTIONS (2)
  - Therapy cessation [Unknown]
  - COVID-19 [Recovered/Resolved]

NARRATIVE: CASE EVENT DATE: 20210603
